FAERS Safety Report 4981558-0 (Version None)
Quarter: 2006Q2

REPORT INFORMATION
  Report Type: 
  Country: None (occurrence: None)
  Receive Date: 20060425
  Receipt Date: 20051116
  Transmission Date: 20061013
  Serious: Yes (Other)
  Sender: FDA-Public Use
  Company Number: US-SP-2005-02496

PATIENT
  Age: 20 Year
  Sex: Female
  Weight: 54 kg

DRUGS (2)
  1. TUBERSOL [Suspect]
     Indication: IMMUNISATION
     Route: 065
     Dates: start: 20051102
  2. TUBERSOL [Suspect]
     Route: 065
     Dates: start: 20051102

REACTIONS (4)
  - DYSPNOEA [None]
  - STRESS [None]
  - THROAT TIGHTNESS [None]
  - TUBERCULIN TEST POSITIVE [None]
